FAERS Safety Report 6419685-3 (Version None)
Quarter: 2009Q4

REPORT INFORMATION
  Report Type: 
  Country: None (occurrence: None)
  Receive Date: 20091029
  Receipt Date: 20091021
  Transmission Date: 20100525
  Serious: Yes (Hospitalization)
  Sender: FDA-Public Use
  Company Number: B0589802A

PATIENT
  Sex: Male
  Weight: 62 kg

DRUGS (7)
  1. ARIXTRA [Suspect]
     Indication: THROMBOSIS PROPHYLAXIS
     Dosage: 2.5MG PER DAY
     Route: 058
     Dates: start: 20090808, end: 20090810
  2. ALBUMIN (HUMAN) [Concomitant]
     Route: 042
     Dates: start: 20090805, end: 20090808
  3. UNKNOWN DRUG [Concomitant]
     Dosage: 300IU3 PER DAY
     Route: 042
     Dates: start: 20090805, end: 20090811
  4. ELASPOL [Concomitant]
     Dosage: 300MG PER DAY
     Route: 042
     Dates: start: 20090805, end: 20090808
  5. GASTER [Concomitant]
     Dosage: 40MG PER DAY
     Route: 065
     Dates: start: 20090805, end: 20090809
  6. ZOSYN [Concomitant]
     Dosage: 13.5G PER DAY
     Route: 042
     Dates: start: 20090805, end: 20090809
  7. ROPION [Concomitant]
     Route: 030

REACTIONS (6)
  - ACUTE RESPIRATORY DISTRESS SYNDROME [None]
  - DISSEMINATED INTRAVASCULAR COAGULATION [None]
  - FAILURE TO ANASTOMOSE [None]
  - PERITONEAL HAEMORRHAGE [None]
  - POST PROCEDURAL HAEMATOMA [None]
  - POSTOPERATIVE ABSCESS [None]
